FAERS Safety Report 8340331-6 (Version None)
Quarter: 2012Q2

REPORT INFORMATION
  Report Type: 
  Country: None (occurrence: None)
  Receive Date: 20120507
  Receipt Date: 20120507
  Transmission Date: 20120825
  Serious: Yes (Other)
  Sender: FDA-Public Use
  Company Number: None

PATIENT
  Age: 65 Year
  Sex: Male
  Weight: 77.11 kg

DRUGS (2)
  1. GENERIC NORCO [Suspect]
     Indication: KNEE OPERATION
     Dosage: |DOSAGETEXT: 1 OR 2 EVERY 4TO 6 HRS||STRENGTH: 10/325||FREQ: 1OR 2 EVERY 4 TO 6||ROUTE: ORAL|
     Route: 048
     Dates: start: 20120421, end: 20120428
  2. GENERIC NORCO [Suspect]
     Indication: ARTHRALGIA
     Dosage: |DOSAGETEXT: 1 OR 2 EVERY 4TO 6 HRS||STRENGTH: 10/325||FREQ: 1OR 2 EVERY 4 TO 6||ROUTE: ORAL|
     Route: 048
     Dates: start: 20120421, end: 20120428

REACTIONS (2)
  - DRUG EFFECT DECREASED [None]
  - PRODUCT QUALITY ISSUE [None]
